FAERS Safety Report 15106029 (Version 1)
Quarter: 2018Q3

REPORT INFORMATION
  Report Type: Other
  Country: IT (occurrence: IT)
  Receive Date: 20180704
  Receipt Date: 20180704
  Transmission Date: 20181010
  Serious: Yes (Hospitalization, Other)
  Sender: FDA-Public Use
  Company Number: IT-APOTEX-2017AP020237

PATIENT
  Age: 55 Year
  Sex: Female

DRUGS (2)
  1. ZOLPIDEM DOC GENERICI [Suspect]
     Active Substance: ZOLPIDEM TARTRATE
     Indication: PRODUCT USED FOR UNKNOWN INDICATION
     Dosage: 20 MG, QD
     Route: 048
  2. LORMETAZEPAM [Suspect]
     Active Substance: LORMETAZEPAM
     Indication: PRODUCT USED FOR UNKNOWN INDICATION
     Dosage: 50 MG, QD
     Route: 048

REACTIONS (3)
  - Drug dependence [Unknown]
  - Drug use disorder [Unknown]
  - Drug abuse [Unknown]

NARRATIVE: CASE EVENT DATE: 20171004
